FAERS Safety Report 24170159 (Version 2)
Quarter: 2024Q3

REPORT INFORMATION
  Report Type: Spontaneous
  Country: US (occurrence: US)
  Receive Date: 20240803
  Receipt Date: 20240824
  Transmission Date: 20241016
  Serious: Yes (Other)
  Sender: ABBVIE
  Company Number: US-ABBVIE-5860827

PATIENT
  Age: 42 Year
  Sex: Male

DRUGS (2)
  1. VRAYLAR [Suspect]
     Active Substance: CARIPRAZINE
     Indication: Major depression
     Dosage: UNKNOWN
     Route: 048
     Dates: start: 20240711
  2. VRAYLAR [Suspect]
     Active Substance: CARIPRAZINE
     Indication: Major depression
     Dosage: UNKNOWN
     Route: 048

REACTIONS (5)
  - Stevens-Johnson syndrome [Unknown]
  - Movement disorder [Unknown]
  - Rash [Unknown]
  - Pain [Unknown]
  - Loss of personal independence in daily activities [Unknown]

NARRATIVE: CASE EVENT DATE: 20240729
